FAERS Safety Report 9081943 (Version 1)
Quarter: 2013Q1

REPORT INFORMATION
  Report Type: Report from Study
  Country: US (occurrence: US)
  Receive Date: 20130130
  Receipt Date: 20130130
  Transmission Date: 20140127
  Serious: No
  Sender: FDA-Public Use
  Company Number: US-ABBOTT-12P-163-0965416-00

PATIENT
  Age: 68 Year
  Sex: Male

DRUGS (5)
  1. HUMIRA 40 MG/0.8 ML PEN [Suspect]
     Indication: CROHN^S DISEASE
  2. PREDNISONE [Concomitant]
     Indication: CROHN^S DISEASE
     Dosage: 5MG DAILY
     Route: 048
  3. LEVOTHYROXINE [Concomitant]
     Indication: HYPOTHYROIDISM
     Dosage: DAILY
     Route: 048
  4. OMEPRAZOLE [Concomitant]
     Indication: GASTROOESOPHAGEAL REFLUX DISEASE
     Dosage: DAILY
     Route: 048
  5. GENERIC AMBIEN [Concomitant]
     Indication: INSOMNIA
     Route: 048

REACTIONS (1)
  - Injection site bruising [Not Recovered/Not Resolved]
